FAERS Safety Report 24957107 (Version 1)
Quarter: 2025Q1

REPORT INFORMATION
  Report Type: Spontaneous
  Country: GR (occurrence: GR)
  Receive Date: 20250211
  Receipt Date: 20250211
  Transmission Date: 20250408
  Serious: Yes (Other)
  Sender: BOEHRINGER INGELHEIM
  Company Number: GR-BoehringerIngelheim-2025-BI-007791

PATIENT
  Age: 86 Year
  Sex: Male
  Weight: 93 kg

DRUGS (7)
  1. JARDIANCE [Suspect]
     Active Substance: EMPAGLIFLOZIN
     Indication: Heart failure with preserved ejection fraction
     Dates: start: 202405, end: 202410
  2. SOTALOL [Concomitant]
     Active Substance: SOTALOL
     Indication: Product used for unknown indication
  3. IRBESARTAN;HYDROCHLOROTHIAZIDE [Concomitant]
     Indication: Hypertension
  4. ALLOPURINOL [Concomitant]
     Active Substance: ALLOPURINOL
     Indication: Hyperuricaemia
  5. METFORMIN [Concomitant]
     Active Substance: METFORMIN HYDROCHLORIDE
     Indication: Type 2 diabetes mellitus
  6. ATORVASTATIN [Concomitant]
     Active Substance: ATORVASTATIN
     Indication: Coronary artery disease
  7. APIXABAN [Concomitant]
     Active Substance: APIXABAN
     Indication: Atrial fibrillation

REACTIONS (1)
  - Cholestasis [Recovered/Resolved]

NARRATIVE: CASE EVENT DATE: 20240701
